FAERS Safety Report 8119889-8 (Version None)
Quarter: 2012Q1

REPORT INFORMATION
  Report Type: 
  Country: None (occurrence: None)
  Receive Date: 20120207
  Receipt Date: 20120202
  Transmission Date: 20120608
  Serious: No
  Sender: FDA-Public Use
  Company Number: US-B.I. PHARMACEUTICALS,INC./RIDGEFIELD-2012-BP-02175PF

PATIENT
  Sex: Female

DRUGS (2)
  1. SPIRIVA [Suspect]
     Route: 065
  2. NORVASC [Suspect]
     Route: 065

REACTIONS (1)
  - BLOOD PRESSURE ABNORMAL [None]
